FAERS Safety Report 16738044 (Version 1)
Quarter: 2019Q3

REPORT INFORMATION
  Report Type: Spontaneous
  Country: US (occurrence: US)
  Receive Date: 20190824
  Receipt Date: 20190824
  Transmission Date: 20191005
  Serious: Yes (Other)
  Sender: FDA-Public Use
  Company Number: PHEH2019US034882

PATIENT
  Age: 70 Year
  Sex: Male

DRUGS (2)
  1. XERAMEL [Suspect]
     Active Substance: ERYTHROMYCIN ESTOLATE
     Indication: NEUROENDOCRINE TUMOUR
     Dosage: UNK
     Route: 065
     Dates: start: 20180813
  2. AFINITOR [Suspect]
     Active Substance: EVEROLIMUS
     Indication: NEUROENDOCRINE TUMOUR
     Dosage: UNK
     Route: 065

REACTIONS (11)
  - Hyperkalaemia [Unknown]
  - Neuroendocrine tumour [Unknown]
  - Nephrolithiasis [Unknown]
  - Renal failure [Unknown]
  - Bone lesion [Unknown]
  - Malignant neoplasm progression [Unknown]
  - Renal cyst [Unknown]
  - Granulomatous liver disease [Unknown]
  - Metastases to liver [Unknown]
  - Oedema [Unknown]
  - Degenerative bone disease [Unknown]
